FAERS Safety Report 8388157-1 (Version None)
Quarter: 2012Q2

REPORT INFORMATION
  Report Type: 
  Country: None (occurrence: None)
  Receive Date: 20120525
  Receipt Date: 20120518
  Transmission Date: 20120825
  Serious: Yes (Hospitalization)
  Sender: FDA-Public Use
  Company Number: US-US-EMD SERONO, INC.-7129680

PATIENT
  Sex: Female
  Weight: 91 kg

DRUGS (4)
  1. GABAPENTIN [Concomitant]
     Indication: NERVE INJURY
  2. CYMBALTA [Concomitant]
     Indication: NERVE INJURY
  3. REBIF [Suspect]
     Indication: MULTIPLE SCLEROSIS
     Route: 058
     Dates: start: 20050524
  4. BACLOFEN [Concomitant]
     Indication: NERVE INJURY

REACTIONS (3)
  - MULTIPLE SCLEROSIS RELAPSE [None]
  - SEPSIS [None]
  - BLOOD PRESSURE FLUCTUATION [None]
